FAERS Safety Report 8481578-8 (Version None)
Quarter: 2012Q3

REPORT INFORMATION
  Report Type: 
  Country: None (occurrence: None)
  Receive Date: 20120702
  Receipt Date: 20120625
  Transmission Date: 20120928
  Serious: Yes (Hospitalization)
  Sender: FDA-Public Use
  Company Number: US-BAYER-2011-023470

PATIENT
  Age: 43 Year
  Sex: Female
  Weight: 68.027 kg

DRUGS (5)
  1. BUPROPION HYDROCHLORIDE [Concomitant]
     Dosage: UNK
     Dates: start: 20061017, end: 20101201
  2. YAZ [Suspect]
     Indication: MENSTRUAL CYCLE MANAGEMENT
  3. YAZ [Suspect]
     Indication: PREMENSTRUAL SYNDROME
     Dosage: UNK
     Route: 048
     Dates: start: 20081008, end: 20100429
  4. YAZ [Suspect]
  5. YAZ [Suspect]
     Indication: ACNE

REACTIONS (6)
  - FEAR [None]
  - CHOLECYSTITIS ACUTE [None]
  - CHOLELITHIASIS [None]
  - ABDOMINAL PAIN [None]
  - EMOTIONAL DISTRESS [None]
  - ANXIETY [None]
